FAERS Safety Report 6398810-7 (Version None)
Quarter: 2009Q4

REPORT INFORMATION
  Report Type: 
  Country: None (occurrence: None)
  Receive Date: 20091013
  Receipt Date: 20091002
  Transmission Date: 20100525
  Serious: Yes (Other)
  Sender: FDA-Public Use
  Company Number: GB-SANOFI-SYNTHELABO-F01200600809

PATIENT
  Sex: Male

DRUGS (4)
  1. OMEPRAZOLE [Concomitant]
     Dosage: UNK
     Route: 065
     Dates: start: 20051201
  2. BEVACIZUMAB [Suspect]
     Route: 042
  3. CAPECITABINE [Suspect]
     Dosage: 1000 MG TWICE DAILY FOR 2 WEEKS, Q3W
     Route: 048
  4. OXALIPLATIN [Suspect]
     Indication: COLON CANCER
     Route: 041

REACTIONS (2)
  - BLOOD LACTATE DEHYDROGENASE INCREASED [None]
  - NON-CARDIAC CHEST PAIN [None]
